FAERS Safety Report 5064139-2 (Version None)
Quarter: 2006Q3

REPORT INFORMATION
  Report Type: 
  Country: None (occurrence: None)
  Receive Date: 20060728
  Receipt Date: 20050722
  Transmission Date: 20061208
  Serious: No
  Sender: FDA-Public Use
  Company Number: US-GLAXOSMITHKLINE-A0567249A

PATIENT
  Age: 2 Month
  Sex: Male

DRUGS (2)
  1. ZANTAC [Suspect]
     Dosage: 7ML TWICE PER DAY
     Route: 048
  2. NO CONCURRENT MEDICATION [Concomitant]

REACTIONS (3)
  - IRRITABILITY [None]
  - MEDICATION ERROR [None]
  - OVERDOSE [None]
